FAERS Safety Report 6634647-9 (Version None)
Quarter: 2010Q1

REPORT INFORMATION
  Report Type: 
  Country: None (occurrence: None)
  Receive Date: 20100315
  Receipt Date: 20100303
  Transmission Date: 20100710
  Serious: Yes (Hospitalization)
  Sender: FDA-Public Use
  Company Number: B0637303A

PATIENT
  Sex: Male
  Weight: 4.1 kg

DRUGS (7)
  1. RETROVIR [Suspect]
     Dosage: 8MG FOUR TIMES PER DAY
     Route: 048
     Dates: start: 20100108, end: 20100111
  2. COMBIVIR [Suspect]
     Indication: HIV INFECTION
     Dates: start: 20090101, end: 20090101
  3. EFFERALGAN [Suspect]
     Dosage: 60MG PER DAY
     Route: 048
     Dates: start: 20100107, end: 20100108
  4. FERROSTRANE [Suspect]
     Dosage: 5ML PER DAY
     Route: 048
     Dates: start: 20100108, end: 20100108
  5. GENTAMICIN [Suspect]
     Dosage: 12MG PER DAY
     Route: 042
     Dates: start: 20100107, end: 20100108
  6. CEFOTAXIME [Suspect]
     Dosage: 0Z VARIABLE DOSE
     Route: 042
     Dates: start: 20100107, end: 20100111
  7. VANCOMYCIN HCL [Suspect]
     Dosage: 60MG FOUR TIMES PER DAY
     Route: 042
     Dates: start: 20100108, end: 20100111

REACTIONS (3)
  - DRUG EXPOSURE DURING PREGNANCY [None]
  - MENINGITIS ENTEROVIRAL [None]
  - NEUTROPENIA [None]
